FAERS Safety Report 6120725-X (Version None)
Quarter: 2009Q1

REPORT INFORMATION
  Report Type: 
  Country: None (occurrence: None)
  Receive Date: 20090317
  Receipt Date: 20090312
  Transmission Date: 20090719
  Serious: Yes (Hospitalization)
  Sender: FDA-Public Use
  Company Number: US-ELI_LILLY_AND_COMPANY-US200812003274

PATIENT
  Sex: Male
  Weight: 98.413 kg

DRUGS (9)
  1. BYETTA [Suspect]
     Indication: TYPE 2 DIABETES MELLITUS
     Dosage: UNK, UNK
     Route: 058
     Dates: start: 20070616
  2. AVAPRO [Concomitant]
  3. LIPITOR [Concomitant]
     Dates: end: 20081124
  4. TRICOR [Concomitant]
     Dates: end: 20081124
  5. METFORMIN HCL [Concomitant]
  6. COREG [Concomitant]
  7. DEMADEX [Concomitant]
     Dates: end: 20081124
  8. HUMALOG [Concomitant]
     Dates: end: 20081124
  9. ASPIRIN [Concomitant]
     Dates: end: 20081124

REACTIONS (5)
  - ALANINE AMINOTRANSFERASE INCREASED [None]
  - ASPARTATE AMINOTRANSFERASE INCREASED [None]
  - DIARRHOEA [None]
  - PANCREATITIS [None]
  - WEIGHT DECREASED [None]
